FAERS Safety Report 4668951-0 (Version None)
Quarter: 2005Q2

REPORT INFORMATION
  Report Type: 
  Country: None (occurrence: None)
  Receive Date: 20050523
  Receipt Date: 20050518
  Transmission Date: 20051028
  Serious: Yes (Death, Life-Threatening, Other)
  Sender: FDA-Public Use
  Company Number: US-GLAXOSMITHKLINE-A0559394A

PATIENT
  Age: 55 Year
  Sex: Male

DRUGS (3)
  1. COREG [Suspect]
     Indication: MYOCARDIAL INFARCTION
     Dates: start: 20050301, end: 20050517
  2. VIAGRA [Concomitant]
  3. ACE INHIBITOR [Concomitant]

REACTIONS (2)
  - AORTIC STENOSIS [None]
  - CARDIAC ARREST [None]
